FAERS Safety Report 7932936-9 (Version None)
Quarter: 2011Q4

REPORT INFORMATION
  Report Type: 
  Country: None (occurrence: None)
  Receive Date: 20111122
  Receipt Date: 20111117
  Transmission Date: 20120403
  Serious: Yes (Other)
  Sender: FDA-Public Use
  Company Number: US-PFIZER INC-2011282776

PATIENT
  Sex: Female

DRUGS (1)
  1. CHANTIX [Suspect]
     Dosage: UNK
     Dates: start: 20070101

REACTIONS (7)
  - DEPRESSION [None]
  - ANXIETY [None]
  - AMNESIA [None]
  - MOOD SWINGS [None]
  - PARANOIA [None]
  - PANIC ATTACK [None]
  - ANGER [None]
